FAERS Safety Report 7394044-8 (Version None)
Quarter: 2011Q2

REPORT INFORMATION
  Report Type: 
  Country: None (occurrence: None)
  Receive Date: 20110405
  Receipt Date: 20101210
  Transmission Date: 20111010
  Serious: No
  Sender: FDA-Public Use
  Company Number: US-AMGEN-USASP2010008761

PATIENT
  Age: 50 Year
  Sex: Female

DRUGS (3)
  1. NEULASTA [Suspect]
     Indication: CHEMOTHERAPY
  2. NEUPOGEN [Suspect]
  3. NEUPOGEN [Suspect]
     Indication: CHEMOTHERAPY

REACTIONS (3)
  - HEADACHE [None]
  - NAUSEA [None]
  - BONE PAIN [None]
